FAERS Safety Report 21229801 (Version 2)
Quarter: 2022Q3

REPORT INFORMATION
  Report Type: Spontaneous
  Country: US (occurrence: US)
  Receive Date: 20220818
  Receipt Date: 20220912
  Transmission Date: 20221027
  Serious: No
  Sender: FDA-Public Use
  Company Number: US-BAYER-2022A106516

PATIENT
  Age: 58 Year
  Sex: Male

DRUGS (4)
  1. ALEVE [Suspect]
     Active Substance: NAPROXEN SODIUM
     Indication: Pain
     Dosage: I TAKE 2 EVERY 12 HOURS
     Route: 048
     Dates: start: 202205, end: 20220727
  2. ALEVE [Suspect]
     Active Substance: NAPROXEN SODIUM
     Indication: Costochondritis
  3. ALEVE [Suspect]
     Active Substance: NAPROXEN SODIUM
     Indication: Arthralgia
  4. IMIPRAMINE [Concomitant]
     Active Substance: IMIPRAMINE

REACTIONS (2)
  - Incorrect dose administered [Recovered/Resolved]
  - Drug ineffective [Recovered/Resolved]

NARRATIVE: CASE EVENT DATE: 20220501
